FAERS Safety Report 8743473 (Version 2)
Quarter: 2012Q4

REPORT INFORMATION
  Report Type: 
  Country: US (occurrence: US)
  Receive Date: 20120824
  Receipt Date: 20121015
  Transmission Date: 20130627
  Serious: Yes (Other)
  Sender: FDA-Public Use
  Company Number: US-ALLERGAN-1211267US

PATIENT
  Age: 65 Year
  Sex: Male

DRUGS (2)
  1. LUMIGAN [Suspect]
     Indication: GLAUCOMA
     Dosage: 2 Gtt, qhs
     Route: 047
     Dates: start: 2010
  2. LUMIGAN [Suspect]
     Dosage: 2 Gtt, qhs
     Route: 047
     Dates: start: 2010

REACTIONS (3)
  - Visual field defect [Unknown]
  - Intraocular pressure increased [Unknown]
  - Growth of eyelashes [Unknown]
